FAERS Safety Report 8111590-X (Version None)
Quarter: 2012Q1

REPORT INFORMATION
  Report Type: 
  Country: None (occurrence: None)
  Receive Date: 20120202
  Receipt Date: 20120202
  Transmission Date: 20120608
  Serious: Yes (Hospitalization)
  Sender: FDA-Public Use
  Company Number: None

PATIENT
  Age: 64 Year
  Sex: Male

DRUGS (1)
  1. LEVOFLOXACIN [Suspect]
     Dosage: 042
     Dates: start: 20100624

REACTIONS (3)
  - OEDEMA PERIPHERAL [None]
  - INFUSION SITE EXTRAVASATION [None]
  - DISCOMFORT [None]
